FAERS Safety Report 5878110-1 (Version None)
Quarter: 2008Q3

REPORT INFORMATION
  Report Type: 
  Country: None (occurrence: None)
  Receive Date: 20080911
  Receipt Date: 20080902
  Transmission Date: 20090109
  Serious: No
  Sender: FDA-Public Use
  Company Number: BR-ROCHE-584934

PATIENT
  Sex: Female

DRUGS (2)
  1. ROACUTAN [Suspect]
     Indication: ACNE
     Dosage: STRENGTH REPORTED AS 10-20 MG/CAP
     Route: 048
     Dates: start: 20080501, end: 20080902
  2. BELARA [Concomitant]
     Indication: CONTRACEPTION

REACTIONS (2)
  - NO ADVERSE EVENT [None]
  - PREGNANCY [None]
